FAERS Safety Report 4675406-6 (Version None)
Quarter: 2005Q2

REPORT INFORMATION
  Report Type: 
  Country: None (occurrence: None)
  Receive Date: 20050527
  Receipt Date: 20050223
  Transmission Date: 20051028
  Serious: Yes (Hospitalization)
  Sender: FDA-Public Use
  Company Number: US-BRISTOL-MYERS SQUIBB COMPANY-12873451

PATIENT
  Age: 68 Year
  Sex: Male

DRUGS (6)
  1. ABILIFY [Suspect]
  2. WELLBUTRIN [Concomitant]
  3. CELEBREX [Concomitant]
  4. EFFEXOR [Concomitant]
  5. DYAZIDE [Concomitant]
  6. LEVOXYL [Concomitant]

REACTIONS (2)
  - RENAL FAILURE ACUTE [None]
  - RHABDOMYOLYSIS [None]
